FAERS Safety Report 6279950-X (Version None)
Quarter: 2009Q3

REPORT INFORMATION
  Report Type: 
  Country: None (occurrence: None)
  Receive Date: 20090723
  Receipt Date: 20090410
  Transmission Date: 20100115
  Serious: No
  Sender: FDA-Public Use
  Company Number: US-AMGEN-KDL342545

PATIENT
  Sex: Male
  Weight: 61.3 kg

DRUGS (5)
  1. PROCRIT [Suspect]
     Indication: HEPATITIS C
     Route: 058
  2. PEGASYS [Concomitant]
     Dates: start: 20080201
  3. RIBAVIRIN [Concomitant]
     Dates: start: 20080201
  4. KLONOPIN [Concomitant]
  5. METHADONE HCL [Concomitant]

REACTIONS (5)
  - FEELING HOT [None]
  - PAIN IN EXTREMITY [None]
  - RASH MACULAR [None]
  - RASH PRURITIC [None]
  - RESPIRATION ABNORMAL [None]
